FAERS Safety Report 6339368-8 (Version None)
Quarter: 2009Q3

REPORT INFORMATION
  Report Type: 
  Country: None (occurrence: None)
  Receive Date: 20090903
  Receipt Date: 20090827
  Transmission Date: 20100115
  Serious: Yes (Other)
  Sender: FDA-Public Use
  Company Number: US-BAYER-200913469BCC

PATIENT
  Age: 89 Year
  Sex: Female
  Weight: 48 kg

DRUGS (4)
  1. BAYER WOMEN'S [Suspect]
     Indication: THROMBOSIS PROPHYLAXIS
     Dosage: TOTAL DAILY DOSE: 81 MG  UNIT DOSE: 81 MG
     Route: 048
     Dates: start: 20090801, end: 20090801
  2. BAYER WOMEN'S [Suspect]
     Dosage: TOTAL DAILY DOSE: 40.5 MG  UNIT DOSE: 81 MG
     Route: 048
     Dates: start: 20090801, end: 20090801
  3. HYZAAR [Concomitant]
     Route: 065
  4. ASPIRIN [Concomitant]
     Route: 065

REACTIONS (1)
  - FOREIGN BODY TRAUMA [None]
